FAERS Safety Report 15981775 (Version 1)
Quarter: 2019Q1

REPORT INFORMATION
  Report Type: Spontaneous
  Country: US (occurrence: US)
  Receive Date: 20190219
  Receipt Date: 20190219
  Transmission Date: 20190418
  Serious: Yes (Hospitalization, Other)
  Sender: FDA-Public Use
  Company Number: US-ACTELION-A-NJ2019-186113

PATIENT
  Age: 80 Year
  Sex: Female

DRUGS (16)
  1. LOPERAMIDE [Concomitant]
     Active Substance: LOPERAMIDE
  2. OMEPRAZOLE. [Concomitant]
     Active Substance: OMEPRAZOLE
  3. OPSUMIT [Suspect]
     Active Substance: MACITENTAN
     Indication: PULMONARY ARTERIAL HYPERTENSION
     Dosage: 10 MG, UNK
     Route: 048
     Dates: start: 20181010
  4. FERREX [Concomitant]
     Active Substance: FERRIC POLYSACCHARIDE COMPLEX
  5. CLOPIDOGREL [Concomitant]
     Active Substance: CLOPIDOGREL BISULFATE
  6. ISOSORB [Concomitant]
  7. CIPROFLOXACIN. [Concomitant]
     Active Substance: CIPROFLOXACIN
  8. FORTE V [Concomitant]
  9. LABETALOL [Concomitant]
     Active Substance: LABETALOL\LABETALOL HYDROCHLORIDE
  10. BENICAR [Concomitant]
     Active Substance: OLMESARTAN MEDOXOMIL
  11. SIMVASTATIN. [Concomitant]
     Active Substance: SIMVASTATIN
  12. ALPRAZOLAM. [Concomitant]
     Active Substance: ALPRAZOLAM
  13. DOXAZOSIN [Concomitant]
     Active Substance: DOXAZOSIN\DOXAZOSIN MESYLATE
  14. HYDROXYCHLOROQUINE [Concomitant]
     Active Substance: HYDROXYCHLOROQUINE
  15. FUROSEMIDE. [Concomitant]
     Active Substance: FUROSEMIDE
  16. NIFEDICAL XL [Concomitant]
     Active Substance: NIFEDIPINE

REACTIONS (6)
  - Rehabilitation therapy [Unknown]
  - Gait disturbance [Unknown]
  - Hospitalisation [Unknown]
  - Speech rehabilitation [Unknown]
  - Speech disorder [Unknown]
  - Dysphagia [Unknown]
